FAERS Safety Report 5246401-3 (Version None)
Quarter: 2007Q1

REPORT INFORMATION
  Report Type: 
  Country: None (occurrence: None)
  Receive Date: 20070226
  Receipt Date: 20070216
  Transmission Date: 20070707
  Serious: Yes (Death)
  Sender: FDA-Public Use
  Company Number: US-JNJFOC-20070204787

PATIENT
  Sex: Female
  Weight: 54.43 kg

DRUGS (3)
  1. DURAGESIC [Suspect]
     Indication: CANCER PAIN
     Route: 062
  2. ELMIRON [Suspect]
     Indication: RENAL DISORDER
     Route: 048
  3. LISINOPRIL [Concomitant]
     Route: 048

REACTIONS (3)
  - CLOSTRIDIAL INFECTION [None]
  - DIARRHOEA [None]
  - VOMITING [None]
